FAERS Safety Report 11510400 (Version 2)
Quarter: 2015Q3

REPORT INFORMATION
  Report Type: Spontaneous
  Country: US (occurrence: US)
  Receive Date: 20150915
  Receipt Date: 20150918
  Transmission Date: 20151125
  Serious: No
  Sender: FDA-Public Use
  Company Number: US-RB-067903-14

PATIENT

DRUGS (1)
  1. MUCINEX [Suspect]
     Active Substance: GUAIFENESIN
     Indication: PRODUCTIVE COUGH
     Dosage: 600MG. PRODUCT LAST USED ON: 05/AUG/2014.,FREQUENCY UNK
     Route: 065
     Dates: start: 20140801

REACTIONS (1)
  - Drug ineffective [Not Recovered/Not Resolved]
